FAERS Safety Report 8900728 (Version 1)
Quarter: 2012Q4

REPORT INFORMATION
  Report Type: 
  Country: US (occurrence: US)
  Receive Date: 20121109
  Receipt Date: 20121109
  Transmission Date: 20130627
  Serious: No
  Sender: FDA-Public Use
  Company Number: US-PFIZER INC-2012279071

PATIENT
  Age: 57 Year
  Sex: Male
  Weight: 88.44 kg

DRUGS (1)
  1. CELEBREX [Suspect]
     Indication: ARTHRITIS
     Dosage: 200 mg, daily
     Dates: start: 201210, end: 20121011

REACTIONS (1)
  - Chest discomfort [Recovered/Resolved]
